FAERS Safety Report 8292708 (Version 24)
Quarter: 2016Q1

REPORT INFORMATION
  Report Type: Report from Study
  Country: CA (occurrence: CA)
  Receive Date: 20111215
  Receipt Date: 20160324
  Transmission Date: 20160526
  Serious: Yes (Death, Other)
  Sender: FDA-Public Use
  Company Number: PHHY2011CA41876

PATIENT
  Age: 68 Year
  Sex: Female

DRUGS (6)
  1. SANDOSTATIN LAR DEPOT [Suspect]
     Active Substance: OCTREOTIDE ACETATE
     Indication: NEUROENDOCRINE TUMOUR
     Dosage: 30 MG, QMO (EVERY 28 DAYS)
     Route: 030
     Dates: start: 20110420, end: 20151005
  2. SANDOSTATIN [Suspect]
     Active Substance: OCTREOTIDE ACETATE
     Indication: NEUROENDOCRINE TUMOUR
     Dosage: 50 UG, ONCE/SINGLE  (TEST DOSE)
     Route: 058
     Dates: start: 20110328, end: 20110328
  3. CREON [Concomitant]
     Active Substance: PANCRELIPASE AMYLASE\PANCRELIPASE LIPASE\PANCRELIPASE PROTEASE
     Indication: DYSPEPSIA
     Route: 065
  4. CIPROFLOXACIN. [Concomitant]
     Active Substance: CIPROFLOXACIN
     Indication: PRODUCT USED FOR UNKNOWN INDICATION
     Dosage: UNK, QD
     Route: 065
  5. AFINITOR [Suspect]
     Active Substance: EVEROLIMUS
     Indication: NEUROENDOCRINE TUMOUR
     Dosage: 10 MG, QD
     Route: 048
     Dates: start: 20110623, end: 201510
  6. NOVO-SPIROTON [Concomitant]
     Indication: PRODUCT USED FOR UNKNOWN INDICATION
     Route: 065

REACTIONS (53)
  - Blood creatinine increased [Unknown]
  - Chills [Recovered/Resolved]
  - Weight increased [Unknown]
  - Diarrhoea [Recovered/Resolved]
  - Dyspepsia [Unknown]
  - Death [Fatal]
  - Tumour necrosis [Unknown]
  - Blood bilirubin abnormal [Recovering/Resolving]
  - Pain [Unknown]
  - Lethargy [Recovered/Resolved]
  - Fall [Unknown]
  - Feeding disorder [Unknown]
  - Dyspnoea exertional [Unknown]
  - Metastases to lung [Unknown]
  - Urinary tract infection [Unknown]
  - Malaise [Unknown]
  - Blood urine present [Unknown]
  - Pain in extremity [Unknown]
  - Gait disturbance [Recovering/Resolving]
  - Malignant neoplasm progression [Unknown]
  - Blood pressure systolic increased [Unknown]
  - Mass [Unknown]
  - Dizziness [Unknown]
  - Neck mass [Unknown]
  - Cough [Recovering/Resolving]
  - Abdominal distension [Recovering/Resolving]
  - Abdominal pain upper [Recovered/Resolved]
  - Abdominal pain [Recovering/Resolving]
  - Headache [Recovering/Resolving]
  - Post procedural infection [Unknown]
  - Haemoglobin abnormal [Recovering/Resolving]
  - Balance disorder [Unknown]
  - Insomnia [Unknown]
  - Ascites [Unknown]
  - Weight decreased [Unknown]
  - Vomiting [Unknown]
  - Injection site mass [Unknown]
  - Pyrexia [Recovered/Resolved]
  - Blood alkaline phosphatase increased [Unknown]
  - Flatulence [Recovering/Resolving]
  - Metastases to kidney [Unknown]
  - Blood pressure increased [Unknown]
  - Oedema peripheral [Recovered/Resolved]
  - Feeling abnormal [Unknown]
  - Fatigue [Not Recovered/Not Resolved]
  - Diarrhoea [Not Recovered/Not Resolved]
  - Flank pain [Unknown]
  - Hyperhidrosis [Recovered/Resolved]
  - Liver function test abnormal [Recovering/Resolving]
  - Blood pressure fluctuation [Unknown]
  - Asthenia [Unknown]
  - Abdominal pain [Recovered/Resolved]
  - Nausea [Recovering/Resolving]

NARRATIVE: CASE EVENT DATE: 2014
